FAERS Safety Report 15490477 (Version 1)
Quarter: 2018Q4

REPORT INFORMATION
  Report Type: Spontaneous
  Country: FR (occurrence: FR)
  Receive Date: 20181011
  Receipt Date: 20181011
  Transmission Date: 20190205
  Serious: Yes (Hospitalization)
  Sender: FDA-Public Use
  Company Number: PHHY2018FR119760

PATIENT
  Age: 75 Year
  Sex: Male

DRUGS (6)
  1. DOLIPRANE [Interacting]
     Active Substance: ACETAMINOPHEN
     Indication: PAIN
     Dosage: 500 MG, QD
     Route: 065
     Dates: start: 20180605, end: 20180610
  2. PREVISCAN (FLUINDIONE) [Interacting]
     Active Substance: FLUINDIONE
     Indication: CARDIAC VALVE PROSTHESIS USER
     Dosage: 25 MG, QD
     Route: 048
     Dates: start: 200512
  3. TRAMADOL HYDROCHLORIDE. [Interacting]
     Active Substance: TRAMADOL HYDROCHLORIDE
     Indication: PAIN
     Dosage: 200 MG, QD
     Route: 048
     Dates: start: 20180613, end: 20180620
  4. ACUPAN [Interacting]
     Active Substance: NEFOPAM HYDROCHLORIDE
     Indication: PAIN
     Dosage: UNK (MAXIMUM 4 AMPOULES PAR JOUR)
     Route: 042
  5. IXPRIM [Interacting]
     Active Substance: ACETAMINOPHEN\TRAMADOL HYDROCHLORIDE
     Indication: PAIN
     Dosage: 3 DF, QD
     Route: 048
     Dates: start: 20180605, end: 20180610
  6. PREDNISONE. [Suspect]
     Active Substance: PREDNISONE
     Indication: PAIN
     Dosage: 60 MG, QD
     Route: 048
     Dates: start: 20180605, end: 20180610

REACTIONS (3)
  - Potentiating drug interaction [Recovered/Resolved]
  - International normalised ratio increased [Recovered/Resolved]
  - Haematoma [Recovered/Resolved]

NARRATIVE: CASE EVENT DATE: 20180605
